FAERS Safety Report 14568655 (Version 1)
Quarter: 2018Q1

REPORT INFORMATION
  Report Type: Spontaneous
  Country: US (occurrence: US)
  Receive Date: 20180221
  Receipt Date: 20180221
  Transmission Date: 20180509
  Serious: Yes (Other)
  Sender: FDA-Public Use
  Company Number: None

PATIENT
  Age: 34 Year
  Sex: Female

DRUGS (1)
  1. OTEZLA [Suspect]
     Active Substance: APREMILAST
     Indication: PSORIASIS
     Dosage: 10-30MG TITRATION PACK DAILY PO
     Route: 048
     Dates: start: 20170124, end: 20180208

REACTIONS (1)
  - Migraine [None]

NARRATIVE: CASE EVENT DATE: 20170124
